FAERS Safety Report 12692812 (Version 4)
Quarter: 2016Q4

REPORT INFORMATION
  Report Type: Report from Study
  Country: US (occurrence: US)
  Receive Date: 20160829
  Receipt Date: 20161017
  Transmission Date: 20170207
  Serious: Yes (Hospitalization)
  Sender: FDA-Public Use
  Company Number: US-ROCHE-1816036

PATIENT
  Age: 58 Year
  Sex: Female
  Weight: 98.1 kg

DRUGS (24)
  1. FERROUS SULFATE. [Concomitant]
     Active Substance: FERROUS SULFATE
     Indication: ANAEMIA
     Dosage: 65 MG IRON, 1 TABLET
     Route: 048
  2. PHENYLEPHRINE HYDROCHLORIDE. [Concomitant]
     Active Substance: PHENYLEPHRINE HYDROCHLORIDE
     Indication: RHINITIS ALLERGIC
     Route: 065
  3. K-DUR [Concomitant]
     Active Substance: POTASSIUM CHLORIDE
     Dosage: 20 MEQ SUSTAINED RELEASE TABLET ONCE
     Route: 048
     Dates: start: 20160731
  4. DILAUDID [Suspect]
     Active Substance: HYDROMORPHONE HYDROCHLORIDE
     Indication: PAIN
     Route: 065
     Dates: start: 2010
  5. PANTOPRAZOLE [Concomitant]
     Active Substance: PANTOPRAZOLE SODIUM
     Indication: OESOPHAGITIS
     Route: 048
  6. PROCHLORPERAZINE EDISYLATE. [Concomitant]
     Active Substance: PROCHLORPERAZINE EDISYLATE
     Indication: PROPHYLAXIS OF NAUSEA AND VOMITING
     Dosage: AS NEEDED
     Route: 048
     Dates: start: 20160719
  7. NITROFURANTOIN. [Concomitant]
     Active Substance: NITROFURANTOIN
     Indication: URINARY TRACT INFECTION
     Route: 048
     Dates: start: 20160722, end: 20160729
  8. PF-06647020 [Suspect]
     Active Substance: INVESTIGATIONAL PRODUCT
     Indication: NEOPLASM
     Dosage: EVERY 21 DAYS IN COHORTS OF 2-4 PATIENTS STARTING AT A DOSE OF 0.20MG/KG.?MOST RECENT DOSE PRIROR TO
     Route: 042
     Dates: start: 20160719
  9. SUCRALFATE SUSPENSION [Concomitant]
     Indication: HERNIA
     Dosage: 100 MG /ML, AS NEEDED
     Route: 048
  10. PF-06647020 [Suspect]
     Active Substance: INVESTIGATIONAL PRODUCT
     Indication: TRIPLE NEGATIVE BREAST CANCER
  11. FLONASE (UNITED STATES) [Concomitant]
     Indication: RHINITIS ALLERGIC
     Dosage: INTRANASAL 1 SPRAY
     Route: 045
  12. PREGABALIN. [Concomitant]
     Active Substance: PREGABALIN
     Indication: PAIN
     Route: 048
  13. ONDANSETRON [Concomitant]
     Active Substance: ONDANSETRON
     Indication: PROPHYLAXIS OF NAUSEA AND VOMITING
     Route: 065
     Dates: start: 20160719
  14. CLONAZEPAM. [Suspect]
     Active Substance: CLONAZEPAM
     Indication: ANXIETY
     Route: 048
     Dates: start: 20151215, end: 20160731
  15. PYRIDOXINE HYDROCHLORIDE. [Concomitant]
     Active Substance: PYRIDOXINE HYDROCHLORIDE
     Route: 048
  16. MIRALAX [Suspect]
     Active Substance: POLYETHYLENE GLYCOL 3350
     Indication: CONSTIPATION
     Route: 065
     Dates: start: 20160721
  17. LOSARTAN. [Concomitant]
     Active Substance: LOSARTAN
     Indication: HYPERTENSION
     Route: 048
     Dates: end: 20160801
  18. CLONAZEPAM. [Suspect]
     Active Substance: CLONAZEPAM
     Route: 048
     Dates: start: 20160831
  19. DURAGESIC [Suspect]
     Active Substance: FENTANYL
     Indication: PAIN
     Dosage: DOSE: 12 MCG/HR 1 PATCH
     Route: 065
     Dates: start: 201507, end: 20160801
  20. SENNA [Concomitant]
     Active Substance: SENNA LEAF\SENNOSIDES\SENNOSIDES A AND B
     Indication: CONSTIPATION
     Dosage: 2 TABLETS
     Route: 048
     Dates: start: 20160725
  21. CELECOXIB. [Concomitant]
     Active Substance: CELECOXIB
     Indication: PAIN
     Route: 048
  22. CETIRIZINE [Concomitant]
     Active Substance: CETIRIZINE HYDROCHLORIDE
     Indication: RHINITIS ALLERGIC
     Route: 048
  23. HYDROCHLOROTHIAZIDE. [Concomitant]
     Active Substance: HYDROCHLOROTHIAZIDE
     Indication: HYPERTENSION
     Route: 048
     Dates: end: 20160801
  24. CALCIUM GLUCONATE. [Concomitant]
     Active Substance: CALCIUM GLUCONATE
     Indication: HYPOCALCAEMIA
     Dosage: 6.4 MEQ/50 ML
     Route: 042
     Dates: start: 20160701

REACTIONS (1)
  - Hypotension [Recovered/Resolved]

NARRATIVE: CASE EVENT DATE: 20160730
